FAERS Safety Report 9647831 (Version 1)
Quarter: 2013Q4

REPORT INFORMATION
  Report Type: Spontaneous
  Country: US (occurrence: None)
  Receive Date: 20131024
  Receipt Date: 20131024
  Transmission Date: 20140711
  Serious: Yes (Disabling)
  Sender: FDA-Public Use
  Company Number: None

PATIENT
  Age: 44 Year
  Sex: Female
  Weight: 73.03 kg

DRUGS (1)
  1. IMIPRAMINE [Suspect]
     Indication: HYPERTONIC BLADDER
     Dosage: 1 TABLET, THREE TIMES DAILY, TAKEN BY MOUTH
     Route: 048
     Dates: start: 20131022, end: 20131022

REACTIONS (5)
  - Memory impairment [None]
  - Dysarthria [None]
  - Headache [None]
  - Muscular weakness [None]
  - Balance disorder [None]
